FAERS Safety Report 25237802 (Version 1)
Quarter: 2025Q2

REPORT INFORMATION
  Report Type: Spontaneous
  Country: US (occurrence: US)
  Receive Date: 20250425
  Receipt Date: 20250425
  Transmission Date: 20250716
  Serious: Yes (Death, Life-Threatening, Hospitalization, Other)
  Sender: GLENMARK
  Company Number: US-MLMSERVICE-20250407-PI472876-00059-1

PATIENT
  Age: 67 Year
  Sex: Male

DRUGS (4)
  1. TACROLIMUS [Suspect]
     Active Substance: TACROLIMUS
     Indication: Immunosuppressant drug therapy
     Route: 065
  2. AZATHIOPRINE [Suspect]
     Active Substance: AZATHIOPRINE
     Indication: Immunosuppressant drug therapy
     Dosage: 50 MILLIGRAM, QD
     Route: 065
  3. PREDNISONE [Suspect]
     Active Substance: PREDNISONE
     Indication: Immunosuppressant drug therapy
     Dosage: 2.5 MILLIGRAM, QD
     Route: 065
  4. PREDNISONE [Suspect]
     Active Substance: PREDNISONE
     Route: 065

REACTIONS (13)
  - Tibia fracture [Fatal]
  - Subdural haematoma [Fatal]
  - Respiratory failure [Fatal]
  - Septic shock [Fatal]
  - Haematological infection [Fatal]
  - Fungal infection [Fatal]
  - Abscess limb [Fatal]
  - Clostridium difficile colitis [Fatal]
  - Osteomyelitis chronic [Fatal]
  - Phaeohyphomycosis [Fatal]
  - Osteomyelitis [Fatal]
  - Soft tissue infection [Fatal]
  - Central nervous system fungal infection [Fatal]
